FAERS Safety Report 8303352-5 (Version None)
Quarter: 2012Q2

REPORT INFORMATION
  Report Type: 
  Country: None (occurrence: None)
  Receive Date: 20120423
  Receipt Date: 20080912
  Transmission Date: 20120825
  Serious: Yes (Other)
  Sender: FDA-Public Use
  Company Number: US-BAYER-200913194NA

PATIENT
  Age: 64 Year
  Sex: Female
  Weight: 72.562 kg

DRUGS (26)
  1. GADOLINIUM IN UNSPECIFIED DRUG [Suspect]
     Indication: NUCLEAR MAGNETIC RESONANCE IMAGING
     Dosage: UNK
     Dates: start: 20060205, end: 20060205
  2. NORVASC [Concomitant]
  3. EPOGEN [Concomitant]
  4. MAGNEVIST [Suspect]
     Indication: ANGIOGRAM
  5. MAGNEVIST [Suspect]
     Indication: ARTERIOGRAM
  6. MULTIHANCE [Suspect]
     Indication: NUCLEAR MAGNETIC RESONANCE IMAGING
  7. GADOLINIUM IN UNSPECIFIED DRUG [Suspect]
  8. VYTORIN [Concomitant]
  9. NEURONTIN [Concomitant]
  10. MAGNEVIST [Suspect]
     Dosage: 40 ML, UNK
     Dates: start: 20050810
  11. OMNISCAN [Suspect]
     Indication: NUCLEAR MAGNETIC RESONANCE IMAGING
  12. ATENOLOL [Concomitant]
  13. LISINOPRIL [Concomitant]
  14. NIFEDIPINE [Concomitant]
  15. WARFARIN SODIUM [Concomitant]
  16. MYFORTIC [Concomitant]
  17. PROHANCE [Suspect]
     Indication: NUCLEAR MAGNETIC RESONANCE IMAGING
  18. PROGRAF [Concomitant]
  19. MAGNEVIST [Suspect]
     Indication: NUCLEAR MAGNETIC RESONANCE IMAGING
     Dosage: UNK
     Route: 042
     Dates: start: 20050727
  20. OPTIMARK [Suspect]
     Indication: NUCLEAR MAGNETIC RESONANCE IMAGING
     Dosage: 15 ML, UNK
     Dates: start: 20061023
  21. OPTIMARK [Suspect]
  22. CALCITRIOL [Concomitant]
  23. LIDOCAINE [Concomitant]
  24. GADOLINIUM IN UNSPECIFIED DRUG [Suspect]
     Dosage: UNK
     Dates: start: 20070725
  25. PREDNISONE TAB [Concomitant]
  26. CATAPRES [Concomitant]

REACTIONS (13)
  - PAIN [None]
  - ANXIETY [None]
  - GENERAL PHYSICAL HEALTH DETERIORATION [None]
  - MUSCULAR WEAKNESS [None]
  - JOINT RANGE OF MOTION DECREASED [None]
  - MUSCLE FIBROSIS [None]
  - EMOTIONAL DISTRESS [None]
  - SCAR [None]
  - STRESS [None]
  - ARTHRALGIA [None]
  - DEFORMITY [None]
  - NEPHROGENIC SYSTEMIC FIBROSIS [None]
  - ANHEDONIA [None]
